FAERS Safety Report 8819499 (Version 2)
Quarter: 2012Q4

REPORT INFORMATION
  Report Type: 
  Country: BR (occurrence: BR)
  Receive Date: 20120930
  Receipt Date: 20121012
  Transmission Date: 20130627
  Serious: Yes (Hospitalization)
  Sender: FDA-Public Use
  Company Number: BR-US-EMD SERONO, INC.-7163632

PATIENT
  Sex: Male

DRUGS (5)
  1. REBIF [Suspect]
     Indication: RELAPSING-REMITTING MULTIPLE SCLEROSIS
     Dates: start: 20080621
  2. PROFENID [Concomitant]
     Indication: PRODUCT USED FOR UNKNOWN INDICATION
  3. AMATO [Concomitant]
     Indication: PRODUCT USED FOR UNKNOWN INDICATION
  4. SEROQUEL PAMELOR [Concomitant]
     Indication: PRODUCT USED FOR UNKNOWN INDICATION
  5. DONAREM (DONAREN (TRAZODONE) [Concomitant]
     Indication: PRODUCT USED FOR UNKNOWN INDICATION

REACTIONS (5)
  - Respiratory tract infection [Unknown]
  - Sinusitis [Recovered/Resolved]
  - Muscle contractions involuntary [Recovered/Resolved]
  - Neuralgia [Recovered/Resolved]
  - Arthralgia [Recovered/Resolved]
